FAERS Safety Report 13805875 (Version 1)
Quarter: 2017Q3

REPORT INFORMATION
  Report Type: Report from Study
  Country: BE (occurrence: BE)
  Receive Date: 20170728
  Receipt Date: 20170728
  Transmission Date: 20171127
  Serious: Yes (Other)
  Sender: FDA-Public Use
  Company Number: BE-SUN PHARMACEUTICAL INDUSTRIES LTD-2017RR-146106

PATIENT
  Sex: Male

DRUGS (7)
  1. EZETIMIBE. [Suspect]
     Active Substance: EZETIMIBE
     Indication: TYPE IIA HYPERLIPIDAEMIA
     Dosage: 10 MG, DAILY
     Route: 065
     Dates: start: 201005
  2. EZETIMIBE. [Suspect]
     Active Substance: EZETIMIBE
     Dosage: 10 MG, DAILY
     Route: 065
     Dates: start: 201011
  3. ATORVASTATIN [Suspect]
     Active Substance: ATORVASTATIN
     Indication: TYPE IIA HYPERLIPIDAEMIA
     Dosage: 5 MG, DAILY
     Route: 065
     Dates: start: 200909
  4. ATORVASTATIN [Suspect]
     Active Substance: ATORVASTATIN
     Dosage: 20 MG, DAILY
     Route: 065
     Dates: start: 200912
  5. ATORVASTATIN [Suspect]
     Active Substance: ATORVASTATIN
     Dosage: 60 MG, DAILY
     Route: 065
     Dates: start: 201011
  6. ATORVASTATIN [Suspect]
     Active Substance: ATORVASTATIN
     Dosage: 40 MG, DAILY
     Route: 065
     Dates: start: 201005
  7. ATORVASTATIN [Suspect]
     Active Substance: ATORVASTATIN
     Dosage: 40 MG, DAILY
     Route: 065
     Dates: start: 201002

REACTIONS (1)
  - Drug effect incomplete [Unknown]
